FAERS Safety Report 21632071 (Version 3)
Quarter: 2022Q4

REPORT INFORMATION
  Report Type: Report from Study
  Country: SG (occurrence: None)
  Receive Date: 20221123
  Receipt Date: 20221216
  Transmission Date: 20230113
  Serious: Yes (Life-Threatening, Hospitalization)
  Sender: FDA-Public Use
  Company Number: SG-ROCHE-3223073

PATIENT
  Age: 73 Year
  Sex: Female
  Weight: 54.5 kg

DRUGS (9)
  1. RITUXIMAB [Suspect]
     Active Substance: RITUXIMAB
     Indication: Chronic lymphocytic leukaemia
     Route: 041
     Dates: start: 20220518, end: 20220518
  2. RITUXIMAB [Suspect]
     Active Substance: RITUXIMAB
     Route: 041
     Dates: start: 20220615, end: 20221103
  3. VENETOCLAX [Suspect]
     Active Substance: VENETOCLAX
     Indication: Chronic lymphocytic leukaemia
     Route: 048
     Dates: start: 20220811, end: 20221114
  4. PIRTOBRUTINIB [Suspect]
     Active Substance: PIRTOBRUTINIB
     Indication: Chronic lymphocytic leukaemia
     Route: 048
     Dates: start: 20220518, end: 20221114
  5. COTRIMOXAZOLE [Concomitant]
     Active Substance: SULFAMETHOXAZOLE\TRIMETHOPRIM
     Dates: start: 20220518
  6. DEXTROSE\SODIUM CHLORIDE [Concomitant]
     Active Substance: DEXTROSE\SODIUM CHLORIDE
     Dates: start: 20221103
  7. SIMVASTATIN [Concomitant]
     Active Substance: SIMVASTATIN
     Dates: start: 20120222
  8. ACYCLOVIR [Concomitant]
     Active Substance: ACYCLOVIR
     Dates: start: 20220518
  9. TOLBUTAMIDE [Concomitant]
     Active Substance: TOLBUTAMIDE
     Dates: start: 20111130

REACTIONS (1)
  - Neutropenic sepsis [Recovered/Resolved]

NARRATIVE: CASE EVENT DATE: 20221115
